FAERS Safety Report 11153062 (Version 1)
Quarter: 2015Q2

REPORT INFORMATION
  Report Type: Report from Study
  Country: US (occurrence: US)
  Receive Date: 20150601
  Receipt Date: 20150601
  Transmission Date: 20150821
  Serious: Yes (Other)
  Sender: FDA-Public Use
  Company Number: PHEH2015US009888

PATIENT
  Sex: Female

DRUGS (1)
  1. GILENYA [Suspect]
     Active Substance: FINGOLIMOD HYDROCHLORIDE
     Indication: MULTIPLE SCLEROSIS
     Dosage: 0.5 MG, QD
     Route: 048

REACTIONS (13)
  - Wheezing [Unknown]
  - Amnesia [Unknown]
  - Confusional state [Unknown]
  - Muscle spasms [Unknown]
  - Visual impairment [Unknown]
  - Deafness [Unknown]
  - Optic neuritis [Unknown]
  - Back pain [Unknown]
  - Bladder spasm [Unknown]
  - Food allergy [Unknown]
  - Fatigue [Unknown]
  - Urinary incontinence [Unknown]
  - Gait disturbance [Unknown]
